FAERS Safety Report 4500974-4 (Version None)
Quarter: 2004Q4

REPORT INFORMATION
  Report Type: 
  Country: None (occurrence: None)
  Receive Date: 20041110
  Receipt Date: 20041102
  Transmission Date: 20050328
  Serious: Yes (Hospitalization)
  Sender: FDA-Public Use
  Company Number: TPA2004A01321

PATIENT
  Age: 70 Year
  Sex: Female
  Weight: 81.6475 kg

DRUGS (14)
  1. ACTOS [Suspect]
     Indication: DIABETES MELLITUS NON-INSULIN-DEPENDENT
     Dosage: 45 MG, 1 IN D, PER ORAL
     Route: 048
     Dates: start: 19990101, end: 20041001
  2. ALTACE [Concomitant]
  3. NEXIUM [Concomitant]
  4. GLUCOPHAGE [Concomitant]
  5. FUROSEMIDE [Concomitant]
  6. ZETIA [Concomitant]
  7. CARTIA (ALL OTHER THERAPEUTIC PRODUCTS) [Concomitant]
  8. AMARYL [Concomitant]
  9. LIPITOR [Concomitant]
  10. ASPIRIN [Concomitant]
  11. VITAMIN E [Concomitant]
  12. HUMULIN N [Concomitant]
  13. HUMALOG 75-25 (INSULIN LISPRO) [Concomitant]
  14. TRUSOPT OPTHALMIC (DORZOLAMIDE HYDROCHLORIDE) [Concomitant]

REACTIONS (2)
  - CARDIAC DISORDER [None]
  - COUGH [None]
